FAERS Safety Report 9730904 (Version 3)
Quarter: 2014Q1

REPORT INFORMATION
  Report Type: Spontaneous
  Country: US (occurrence: US)
  Receive Date: 20131205
  Receipt Date: 20140305
  Transmission Date: 20141002
  Serious: No
  Sender: FDA-Public Use
  Company Number: US-B.I. PHARMACEUTICALS,INC./RIDGEFIELD-2013-BI-38784BP

PATIENT
  Age: 80 Year
  Sex: Female
  Weight: 79 kg

DRUGS (16)
  1. SPIRIVA [Suspect]
     Indication: CHRONIC OBSTRUCTIVE PULMONARY DISEASE
     Dosage: 18 MCG
     Route: 055
     Dates: start: 2007
  2. OMEPRAZOLE [Concomitant]
     Dosage: 40 MG
     Route: 065
  3. PROAIR HFA [Concomitant]
     Route: 065
  4. CYMBALTA [Concomitant]
     Dosage: 30 MG
     Route: 065
  5. SOTALOL HCL [Concomitant]
     Dosage: 80 MG
     Route: 065
  6. DETROL LA [Concomitant]
     Route: 065
  7. NEURONTIN [Concomitant]
     Route: 065
  8. HYZAAR [Concomitant]
     Dosage: DOSE PER APPLICATION: 100/25 1/2
     Route: 048
  9. MAGOXIDE [Concomitant]
     Route: 048
  10. KLONOPIN [Concomitant]
     Route: 065
  11. TRADJENTA [Concomitant]
     Route: 065
  12. SYNTHROID [Concomitant]
     Route: 065
  13. PRAVACHOL [Concomitant]
     Route: 065
  14. FLONASE [Concomitant]
     Dosage: FORMULATION: NASAL SPRAY
     Route: 045
  15. NORCO 5/325 [Concomitant]
     Route: 048
  16. COUMADIN [Concomitant]
     Route: 065

REACTIONS (3)
  - Eye pruritus [Not Recovered/Not Resolved]
  - Product quality issue [Recovered/Resolved]
  - Product quality issue [Recovered/Resolved]
